FAERS Safety Report 11339241 (Version 2)
Quarter: 2015Q3

REPORT INFORMATION
  Report Type: Report from Study
  Country: US (occurrence: US)
  Receive Date: 20150804
  Receipt Date: 20150828
  Transmission Date: 20151125
  Serious: No
  Sender: FDA-Public Use
  Company Number: US-AMGEN-USASP2015076472

PATIENT
  Age: 68 Year
  Sex: Female
  Weight: 77.55 kg

DRUGS (23)
  1. CHOLECALCIFEROL [Concomitant]
     Active Substance: CHOLECALCIFEROL
     Dosage: 400 UNIT, UNK
  2. FISH OIL W/OMEGA-3 FATTY ACIDS [Concomitant]
     Dosage: 100 MG, UNK
  3. ZOMIG [Concomitant]
     Active Substance: ZOLMITRIPTAN
     Dosage: 2.5 MG, UNK
  4. ENBREL [Suspect]
     Active Substance: ETANERCEPT
     Indication: PSORIATIC ARTHROPATHY
     Dosage: 50 MG, QWK
     Route: 065
     Dates: start: 20150713, end: 2015
  5. VENLAFAXINE [Concomitant]
     Active Substance: VENLAFAXINE HYDROCHLORIDE
     Dosage: 75 MG, UNK
  6. ASPIRIN CAFFEINE [Concomitant]
     Active Substance: ASPIRIN\CAFFEINE
     Dosage: UNK
     Route: 048
  7. ATENOLOL. [Concomitant]
     Active Substance: ATENOLOL
     Dosage: 100 MG, UNK
  8. CALCIUM [Concomitant]
     Active Substance: CALCIUM
     Dosage: 500 MG, UNK
  9. CLINDAMYCIN [Concomitant]
     Active Substance: CLINDAMYCIN\CLINDAMYCIN PHOSPHATE
     Dosage: 300 MG, UNK
  10. DOCUSATE SODIUM. [Concomitant]
     Active Substance: DOCUSATE SODIUM
     Dosage: 100 MG, UNK
  11. GLUCOSAMINE CHONDROITIN            /01430901/ [Concomitant]
     Dosage: 750-600 MG
  12. METFORMIN [Concomitant]
     Active Substance: METFORMIN HYDROCHLORIDE
     Dosage: 500 MG, UNK
  13. MELATONIN [Concomitant]
     Active Substance: MELATONIN
     Dosage: 3 MG, UNK
  14. SIMVASTATIN. [Concomitant]
     Active Substance: SIMVASTATIN
     Dosage: 80 MG, UNK
  15. AMITRIPTYLINE [Concomitant]
     Active Substance: AMITRIPTYLINE
     Dosage: 100 MG, UNK
  16. NALTREXONE [Concomitant]
     Active Substance: NALTREXONE
     Dosage: 50 MG, UNK
  17. LEVOTHYROXINE. [Concomitant]
     Active Substance: LEVOTHYROXINE
     Dosage: 75 MUG, UNK
  18. ASPIRIN                            /00002701/ [Concomitant]
     Active Substance: ASPIRIN
     Dosage: 81 MG, UNK
  19. ENBREL [Suspect]
     Active Substance: ETANERCEPT
     Indication: PSORIASIS
  20. RESTASIS [Concomitant]
     Active Substance: CYCLOSPORINE
     Dosage: 0.06 %, UNK
  21. NEXIUM [Concomitant]
     Active Substance: ESOMEPRAZOLE MAGNESIUM
     Dosage: 40 MG, UNK
  22. PREDNISONE. [Concomitant]
     Active Substance: PREDNISONE
     Dosage: 5 MG, UNK
  23. METOCHLOPRAMIDE [Concomitant]
     Active Substance: METOCLOPRAMIDE HYDROCHLORIDE
     Dosage: 10 MG, UNK

REACTIONS (7)
  - Rash papular [Recovered/Resolved]
  - Injection site swelling [Recovered/Resolved]
  - Injection site erythema [Recovered/Resolved]
  - Injection site pruritus [Recovered/Resolved]
  - Rash [Recovered/Resolved]
  - Injection site rash [Recovered/Resolved]
  - Rash pruritic [Recovered/Resolved]

NARRATIVE: CASE EVENT DATE: 201507
